FAERS Safety Report 4586414-8 (Version None)
Quarter: 2005Q1

REPORT INFORMATION
  Report Type: 
  Country: None (occurrence: None)
  Receive Date: 20050125
  Receipt Date: 20040907
  Transmission Date: 20050727
  Serious: No
  Sender: FDA-Public Use
  Company Number: USA040977592

PATIENT
  Age: 81 Year
  Sex: Female

DRUGS (5)
  1. FORTEO [Suspect]
     Indication: OSTEOPOROSIS
     Dates: start: 20040801
  2. BEXTRA [Concomitant]
  3. CALCIUM GLUCONATE [Concomitant]
  4. VIACTIV [Concomitant]
  5. MULTIVITAMIN [Concomitant]

REACTIONS (4)
  - ABDOMINAL DISTENSION [None]
  - INSOMNIA [None]
  - NAUSEA [None]
  - SKIN REACTION [None]
